FAERS Safety Report 25671002 (Version 1)
Quarter: 2025Q3

REPORT INFORMATION
  Report Type: Spontaneous
  Country: US (occurrence: None)
  Receive Date: 20250811
  Receipt Date: 20250811
  Transmission Date: 20251021
  Serious: Yes (Disabling)
  Sender: FDA-CTU
  Company Number: None

PATIENT
  Age: 63 Year
  Sex: Male
  Weight: 100.7 kg

DRUGS (15)
  1. SKYRIZI [Suspect]
     Active Substance: RISANKIZUMAB-RZAA
     Indication: Psoriasis
     Route: 058
     Dates: end: 20250224
  2. SKYRIZI [Suspect]
     Active Substance: RISANKIZUMAB-RZAA
     Route: 058
  3. LISINOPRIL [Concomitant]
     Active Substance: LISINOPRIL
  4. MANY VITAMINS [Concomitant]
  5. VITAMIN C [Concomitant]
     Active Substance: ASCORBIC ACID
  6. VITAMIN B [Concomitant]
     Active Substance: VITAMIN B
  7. KRILL OIL [Concomitant]
     Active Substance: DIETARY SUPPLEMENT\KRILL OIL
  8. MINERALS\VITAMINS [Concomitant]
     Active Substance: MINERALS\VITAMINS
  9. N.A.C. [Concomitant]
  10. VITAMINS K2 + D-3 [Concomitant]
  11. PROSTAGENIX [Concomitant]
  12. PRASTERONE [Concomitant]
     Active Substance: PRASTERONE
  13. DIETARY SUPPLEMENT\HERBALS\MILK THISTLE [Concomitant]
     Active Substance: MILK THISTLE
  14. TAURINE [Concomitant]
     Active Substance: TAURINE
  15. JOINT + MUSCLE SUPPORT OIL [Concomitant]

REACTIONS (7)
  - Pain in extremity [None]
  - Gait disturbance [None]
  - Arthralgia [None]
  - Joint stiffness [None]
  - Osteoarthritis [None]
  - Limb asymmetry [None]
  - Chondropathy [None]
